FAERS Safety Report 25892858 (Version 1)
Quarter: 2025Q4

REPORT INFORMATION
  Report Type: Spontaneous
  Country: CN (occurrence: CN)
  Receive Date: 20251007
  Receipt Date: 20251007
  Transmission Date: 20260117
  Serious: Yes (Hospitalization, Disabling, Other)
  Sender: BEIGENE
  Company Number: CN-BEIGENE-BGN-2025-016882

PATIENT
  Age: 71 Year
  Weight: 55 kg

DRUGS (4)
  1. TISLELIZUMAB [Suspect]
     Active Substance: TISLELIZUMAB
     Indication: Neoplasm malignant
     Dosage: 200 MILLIGRAM
  2. TISLELIZUMAB [Suspect]
     Active Substance: TISLELIZUMAB
     Dosage: 200 MILLIGRAM
     Route: 041
  3. TISLELIZUMAB [Suspect]
     Active Substance: TISLELIZUMAB
     Dosage: 200 MILLIGRAM
     Route: 041
  4. TISLELIZUMAB [Suspect]
     Active Substance: TISLELIZUMAB
     Dosage: 200 MILLIGRAM

REACTIONS (4)
  - Adrenal insufficiency [Recovering/Resolving]
  - Hyponatraemia [Recovering/Resolving]
  - Asthenia [Recovering/Resolving]
  - Off label use [Unknown]
